FAERS Safety Report 20584571 (Version 1)
Quarter: 2022Q1

REPORT INFORMATION
  Report Type: Other
  Country: GB (occurrence: GB)
  Receive Date: 20220311
  Receipt Date: 20220311
  Transmission Date: 20220423
  Serious: Yes (Hospitalization)
  Sender: FDA-Public Use
  Company Number: GB-MHRA-MED-202203021917591250-TGPB8

PATIENT
  Sex: Female

DRUGS (2)
  1. OMNIPAQUE [Suspect]
     Active Substance: IOHEXOL
     Indication: Computerised tomogram
     Dosage: 98 ML, SINGLE
     Route: 065
  2. OMNIPAQUE [Suspect]
     Active Substance: IOHEXOL
     Indication: Product used for unknown indication

REACTIONS (3)
  - Sneezing [Recovered/Resolved]
  - Cough [Recovered/Resolved]
  - Dyspnoea [Recovered/Resolved]
